FAERS Safety Report 8572908-7 (Version None)
Quarter: 2012Q3

REPORT INFORMATION
  Report Type: 
  Country: None (occurrence: None)
  Receive Date: 20120806
  Receipt Date: 20120730
  Transmission Date: 20120928
  Serious: Yes (Other)
  Sender: FDA-Public Use
  Company Number: US-BAYER-2012-077204

PATIENT
  Age: 32 Year
  Sex: Female
  Weight: 73 kg

DRUGS (1)
  1. ALEVE (CAPLET) [Suspect]
     Dosage: 1 DF, ONCE
     Route: 048
     Dates: start: 20120728, end: 20120728

REACTIONS (7)
  - PRURITUS [None]
  - HYPERSENSITIVITY [None]
  - EYE PRURITUS [None]
  - LOSS OF CONSCIOUSNESS [None]
  - THROAT TIGHTNESS [None]
  - SWOLLEN TONGUE [None]
  - FLUSHING [None]
